FAERS Safety Report 20752882 (Version 1)
Quarter: 2022Q2

REPORT INFORMATION
  Report Type: Spontaneous
  Country: US (occurrence: None)
  Receive Date: 20220426
  Receipt Date: 20220426
  Transmission Date: 20220721
  Serious: No
  Sender: FDA-Public Use
  Company Number: US-ROCHE-2919485

PATIENT
  Age: 67 Year
  Sex: Male

DRUGS (1)
  1. ESBRIET [Suspect]
     Active Substance: PIRFENIDONE
     Indication: Product used for unknown indication
     Dosage: ON AN UNKNOWN DATE, THE PIRFENIDONE DOSE WAS DECREASED FROM 3 X 267 MG TABLETS TID TO 1 TABLET TID.
     Route: 048
     Dates: start: 202107

REACTIONS (3)
  - Decreased appetite [Unknown]
  - Dyspepsia [Unknown]
  - Diarrhoea [Unknown]

NARRATIVE: CASE EVENT DATE: 20210801
